FAERS Safety Report 19972219 (Version 2)
Quarter: 2021Q4

REPORT INFORMATION
  Report Type: Spontaneous
  Country: FR (occurrence: FR)
  Receive Date: 20211019
  Receipt Date: 20211025
  Transmission Date: 20220304
  Serious: Yes (Congenital Anomaly, Other)
  Sender: FDA-Public Use
  Company Number: NVSC2021FR236344

PATIENT
  Sex: Male

DRUGS (3)
  1. CERITINIB [Suspect]
     Active Substance: CERITINIB
     Indication: Foetal exposure during pregnancy
     Dosage: MATERNAL DOSE: 450 MG/DAY
     Route: 064
  2. LEVETIRACETAM [Suspect]
     Active Substance: LEVETIRACETAM
     Indication: Foetal exposure during pregnancy
     Dosage: MATERNAL DOSE: 250 MG TWICE A DAY
     Route: 064
  3. PREDNISOLONE [Suspect]
     Active Substance: PREDNISOLONE
     Indication: Foetal exposure during pregnancy
     Dosage: MATERNAL DOSE: 100 MG THREE TIMES A DAY WITH PROGRESSIVE TAPERING
     Route: 064

REACTIONS (3)
  - Polydactyly [Unknown]
  - Premature baby [Unknown]
  - Foetal exposure during pregnancy [Unknown]
